FAERS Safety Report 9415091 (Version 1)
Quarter: 2013Q3

REPORT INFORMATION
  Report Type: Spontaneous
  Country: BR (occurrence: BR)
  Receive Date: 20130723
  Receipt Date: 20130723
  Transmission Date: 20140515
  Serious: Yes (Hospitalization, Other)
  Sender: FDA-Public Use
  Company Number: BR-JNJFOC-20130711455

PATIENT
  Age: 47 Year
  Sex: Female
  Weight: 77 kg

DRUGS (5)
  1. SIMPONI [Suspect]
     Indication: RHEUMATOID ARTHRITIS
     Dosage: FIRST DOSE, APPROXIMATELY 1 MONTH PRIOR TO REPORT
     Route: 058
     Dates: start: 201306
  2. LOSARTAN [Concomitant]
     Indication: HYPERTENSION
     Route: 065
  3. PLAQUENIL [Concomitant]
     Indication: RHEUMATOID ARTHRITIS
     Route: 065
  4. NAPROSYN [Concomitant]
     Indication: RHEUMATOID ARTHRITIS
     Route: 065
  5. OMEPRAZOLE [Concomitant]
     Indication: GASTROINTESTINAL DISORDER THERAPY
     Route: 065

REACTIONS (3)
  - Convulsion [Recovered/Resolved]
  - Pneumonia [Recovered/Resolved]
  - Urinary tract infection [Not Recovered/Not Resolved]
